FAERS Safety Report 11710742 (Version 1)
Quarter: 2015Q4

REPORT INFORMATION
  Report Type: Spontaneous
  Country: US (occurrence: US)
  Receive Date: 20151104
  Receipt Date: 20151104
  Transmission Date: 20160304
  Serious: No
  Sender: FDA-Public Use
  Company Number: US-ELI_LILLY_AND_COMPANY-US201104005825

PATIENT
  Age: 62 Year
  Sex: Female

DRUGS (1)
  1. FORTEO [Suspect]
     Active Substance: TERIPARATIDE
     Indication: OSTEOPOROSIS
     Dosage: 20 UG, QD
     Dates: start: 20110411, end: 20110415

REACTIONS (7)
  - Pain in extremity [Recovering/Resolving]
  - Oedema peripheral [Unknown]
  - Sleep disorder [Unknown]
  - Eating disorder [Unknown]
  - Joint swelling [Recovering/Resolving]
  - Hypokinesia [Unknown]
  - Hypokinesia [Recovered/Resolved]

NARRATIVE: CASE EVENT DATE: 20110416
